FAERS Safety Report 10748861 (Version 2)
Quarter: 2015Q1

REPORT INFORMATION
  Report Type: Report from Study
  Country: DE (occurrence: DE)
  Receive Date: 20150129
  Receipt Date: 20150304
  Transmission Date: 20150721
  Serious: Yes (Hospitalization)
  Sender: FDA-Public Use
  Company Number: DE-ABBVIE-15K-062-1336983-00

PATIENT
  Sex: Female
  Weight: 56 kg

DRUGS (5)
  1. HUMIRA [Suspect]
     Active Substance: ADALIMUMAB
     Indication: PRODUCT USED FOR UNKNOWN INDICATION
     Route: 058
     Dates: start: 20140115, end: 201407
  2. HUMIRA [Suspect]
     Active Substance: ADALIMUMAB
     Route: 058
     Dates: start: 201408
  3. MESALAZINE [Concomitant]
     Active Substance: MESALAMINE
     Indication: PRODUCT USED FOR UNKNOWN INDICATION
     Dates: start: 201401, end: 201408
  4. PANTOZOL [Concomitant]
     Active Substance: PANTOPRAZOLE SODIUM
     Indication: PRODUCT USED FOR UNKNOWN INDICATION
     Route: 048
  5. PREDNISOLONE. [Concomitant]
     Active Substance: PREDNISOLONE
     Indication: PRODUCT USED FOR UNKNOWN INDICATION
     Dosage: 20MG WITH REDUCTION OF 2.5MG/WEEK UNTIL COMPLETE
     Route: 048
     Dates: start: 201408

REACTIONS (13)
  - Proctitis [Unknown]
  - Intestinal mucosal hypertrophy [Unknown]
  - Diarrhoea haemorrhagic [Unknown]
  - Inflammatory bowel disease [Unknown]
  - Erythema nodosum [Recovered/Resolved]
  - Splenomegaly [Unknown]
  - Gastrointestinal inflammation [Unknown]
  - Colitis ulcerative [Unknown]
  - Gastrointestinal mucosa hyperaemia [Unknown]
  - Colitis [Not Recovered/Not Resolved]
  - Abscess intestinal [Unknown]
  - Tonsillitis [Unknown]
  - Immunosuppression [Unknown]

NARRATIVE: CASE EVENT DATE: 2014
